FAERS Safety Report 9784669 (Version 2)
Quarter: 2014Q2

REPORT INFORMATION
  Report Type: Report from Study
  Country: DE (occurrence: DE)
  Receive Date: 20131226
  Receipt Date: 20140415
  Transmission Date: 20141212
  Serious: Yes (Hospitalization)
  Sender: FDA-Public Use
  Company Number: DE-ROCHE-1323692

PATIENT
  Age: 77 Year
  Sex: Male
  Weight: 86 kg

DRUGS (1)
  1. VEMURAFENIB [Suspect]
     Indication: METASTATIC MALIGNANT MELANOMA
     Dosage: MOST RECENT DOSE OF VEMURAFENIB RECIEVED ON 17/DEC/2013, DOSE OF LAST VEMURAFENIB PRESCRIBED 1920 MG
     Route: 048
     Dates: start: 20131202

REACTIONS (1)
  - General physical health deterioration [Recovered/Resolved with Sequelae]
